FAERS Safety Report 7918443-8 (Version None)
Quarter: 2011Q4

REPORT INFORMATION
  Report Type: 
  Country: None (occurrence: None)
  Receive Date: 20111114
  Receipt Date: 20111102
  Transmission Date: 20120403
  Serious: Yes (Hospitalization)
  Sender: FDA-Public Use
  Company Number: 2011MA016128

PATIENT
  Age: 79 Year
  Sex: Female

DRUGS (4)
  1. INDAPAMIDE [Suspect]
     Indication: HYPERTENSION
     Dosage: 2.5 MG;PO
     Route: 048
     Dates: start: 20111010, end: 20111020
  2. LEVOTHYROXINE SODIUM [Concomitant]
  3. AMLODIPINE [Concomitant]
  4. AMLODIPINE [Concomitant]

REACTIONS (3)
  - CONFUSIONAL STATE [None]
  - DEHYDRATION [None]
  - VOMITING [None]
